FAERS Safety Report 6625657-6 (Version None)
Quarter: 2010Q1

REPORT INFORMATION
  Report Type: 
  Country: None (occurrence: None)
  Receive Date: 20100223
  Receipt Date: 20091123
  Transmission Date: 20100710
  Serious: No
  Sender: FDA-Public Use
  Company Number: 8055121

PATIENT
  Sex: Male
  Weight: 63.5 kg

DRUGS (8)
  1. CIMZIA [Suspect]
     Indication: CROHN'S DISEASE
     Dosage: (SUBCUTANEOUS)
     Route: 058
     Dates: start: 20070101
  2. PREDNISONE TAB [Concomitant]
  3. METRONIDAZOLE [Concomitant]
  4. NEXIUM [Concomitant]
  5. MINOCYCLINE HCL [Concomitant]
  6. VITAMIN D [Concomitant]
  7. ZOLEDRONIC ACID [Concomitant]
  8. IRON [Concomitant]

REACTIONS (2)
  - CROHN'S DISEASE [None]
  - HERPES ZOSTER [None]
